FAERS Safety Report 4404678-8 (Version None)
Quarter: 2004Q3

REPORT INFORMATION
  Report Type: 
  Country: None (occurrence: None)
  Receive Date: 20040722
  Receipt Date: 20040706
  Transmission Date: 20050211
  Serious: Yes (Death)
  Sender: FDA-Public Use
  Company Number: JP-MERCK-0407USA00699

PATIENT
  Age: 15 Year
  Sex: Female

DRUGS (15)
  1. ZOVIRAX [Suspect]
     Route: 065
  2. ALBUMIN (HUMAN) [Concomitant]
     Route: 042
     Dates: start: 20040217
  3. CATECHOLAMINE [Concomitant]
     Route: 065
  4. MODACIN [Suspect]
     Indication: INFECTION
     Route: 065
  5. PRIMAXIN [Suspect]
     Indication: INFECTION
     Route: 041
     Dates: start: 20040217
  6. DOBUTREX [Concomitant]
     Route: 042
  7. INOVAN [Concomitant]
     Route: 042
  8. PEPCID [Concomitant]
     Route: 065
  9. LASIX [Concomitant]
     Route: 065
     Dates: start: 20040217
  10. IMMUNE GLOBULIN INTRAVENOUS (HUMAN) [Concomitant]
     Route: 042
  11. INSULIN [Concomitant]
     Route: 065
  12. INSULIN HUMAN [Concomitant]
     Route: 065
  13. MICAFUNGIN [Suspect]
     Indication: INFECTION
     Route: 041
     Dates: start: 20040209
  14. MINOMYCIN [Suspect]
     Route: 041
  15. PROGRAF [Suspect]
     Indication: IMMUNOSUPPRESSION
     Route: 065
     Dates: start: 20040130, end: 20040226

REACTIONS (3)
  - BLOOD GLUCOSE INCREASED [None]
  - HAEMOLYTIC URAEMIC SYNDROME [None]
  - RENAL FAILURE ACUTE [None]
